FAERS Safety Report 14365017 (Version 1)
Quarter: 2018Q1

REPORT INFORMATION
  Report Type: Spontaneous
  Country: US (occurrence: US)
  Receive Date: 20180108
  Receipt Date: 20180108
  Transmission Date: 20180509
  Serious: No
  Sender: FDA-Public Use
  Company Number: US-ROCHE-1964204

PATIENT
  Age: 36 Year
  Sex: Female

DRUGS (1)
  1. ACTIVASE [Suspect]
     Active Substance: ALTEPLASE
     Indication: CEREBROVASCULAR ACCIDENT
     Dosage: ONE TIME DOSE
     Route: 065

REACTIONS (4)
  - Nausea [Unknown]
  - Chest pain [Unknown]
  - Lip swelling [Unknown]
  - Dyspnoea [Unknown]
